FAERS Safety Report 8770218 (Version 1)
Quarter: 2012Q4

REPORT INFORMATION
  Report Type: 
  Country: GB (occurrence: GB)
  Receive Date: 20120904
  Receipt Date: 20120904
  Transmission Date: 20130627
  Serious: Yes (Hospitalization, Other)
  Sender: FDA-Public Use
  Company Number: GB-MYLANLABS-2012S1017252

PATIENT
  Age: 35 Year
  Sex: Male

DRUGS (1)
  1. CIPROFLOXACIN [Suspect]
     Indication: URINARY TRACT INFECTION
     Dates: start: 20120804, end: 20120806

REACTIONS (9)
  - Anaphylactic reaction [Unknown]
  - Muscular weakness [Not Recovered/Not Resolved]
  - Heart rate increased [Recovered/Resolved]
  - Immobile [Not Recovered/Not Resolved]
  - Joint crepitation [Not Recovered/Not Resolved]
  - Arthritis [Not Recovered/Not Resolved]
  - Sensory loss [Unknown]
  - Sensation of heaviness [Unknown]
  - Pain [Recovered/Resolved]
